FAERS Safety Report 4661775-X (Version None)
Quarter: 2005Q2

REPORT INFORMATION
  Report Type: 
  Country: None (occurrence: None)
  Receive Date: 20050512
  Receipt Date: 20050512
  Transmission Date: 20051028
  Serious: Yes (Hospitalization)
  Sender: FDA-Public Use
  Company Number: None

PATIENT
  Age: 79 Year
  Sex: Female
  Weight: 48 kg

DRUGS (5)
  1. COUMADIN [Suspect]
     Indication: ATRIAL FIBRILLATION
     Dosage: 5 MG DAILY
  2. AMBIEN [Concomitant]
  3. ZOCOR [Concomitant]
  4. ALTACE [Concomitant]
  5. NORVASC [Concomitant]

REACTIONS (2)
  - ABDOMINAL HAEMATOMA [None]
  - MUSCLE HAEMORRHAGE [None]
